FAERS Safety Report 4534565-6 (Version None)
Quarter: 2004Q4

REPORT INFORMATION
  Report Type: 
  Country: None (occurrence: None)
  Receive Date: 20041222
  Receipt Date: 20041213
  Transmission Date: 20050328
  Serious: Yes (Hospitalization)
  Sender: FDA-Public Use
  Company Number: FR-BRISTOL-MYERS SQUIBB COMPANY-12799458

PATIENT
  Age: 49 Year
  Sex: Male

DRUGS (5)
  1. VINFLUNINE IV [Suspect]
     Indication: NON-SMALL CELL LUNG CANCER
     Dosage: ACTUAL DOSE WAS 499 MG.
     Route: 042
     Dates: start: 20040623, end: 20040623
  2. CARBOPLATIN [Suspect]
     Indication: NON-SMALL CELL LUNG CANCER
     Dosage: ADM AS AUC 5
     Route: 042
     Dates: start: 20040623, end: 20040623
  3. ACETAMINOPHEN [Concomitant]
     Route: 048
     Dates: start: 20040601
  4. ZOPHREN [Concomitant]
     Route: 042
     Dates: start: 20040623, end: 20040623
  5. SOLU-MEDROL [Concomitant]
     Route: 042
     Dates: start: 20040623, end: 20040623

REACTIONS (3)
  - BRADYCARDIA [None]
  - HYPOTENSION [None]
  - SYNCOPE VASOVAGAL [None]
